FAERS Safety Report 6225811-1 (Version None)
Quarter: 2009Q2

REPORT INFORMATION
  Report Type: 
  Country: None (occurrence: None)
  Receive Date: 20090612
  Receipt Date: 20090427
  Transmission Date: 20091009
  Serious: Yes (Hospitalization)
  Sender: FDA-Public Use
  Company Number: US-ABBOTT-09P-163-0570099-00

PATIENT
  Sex: Female
  Weight: 53.572 kg

DRUGS (4)
  1. HUMIRA [Suspect]
     Indication: CROHN'S DISEASE
     Route: 058
     Dates: start: 20080801, end: 20090301
  2. HUMIRA [Suspect]
     Route: 058
     Dates: start: 20090418
  3. GLUCOPHAGE [Concomitant]
     Indication: DIABETES MELLITUS
  4. CARDIZEM CD [Concomitant]
     Indication: CARDIAC DISORDER

REACTIONS (5)
  - ANOREXIA [None]
  - ASTHENIA [None]
  - GASTROINTESTINAL PAIN [None]
  - ORAL HERPES [None]
  - PNEUMONIA [None]
